FAERS Safety Report 14443510 (Version 2)
Quarter: 2018Q3

REPORT INFORMATION
  Report Type: Report from Study
  Country: US (occurrence: US)
  Receive Date: 20180125
  Receipt Date: 20180724
  Transmission Date: 20181010
  Serious: No
  Sender: FDA-Public Use
  Company Number: US-AMGEN-USASL2017156343

PATIENT
  Sex: Female

DRUGS (4)
  1. DEXAMETHASONE. [Concomitant]
     Active Substance: DEXAMETHASONE
     Indication: PLASMA CELL MYELOMA
     Dosage: UNK
     Dates: start: 2014
  2. KYPROLIS [Suspect]
     Active Substance: CARFILZOMIB
     Dosage: 27 MG, UNK
     Route: 065
     Dates: start: 2017, end: 2017
  3. KYPROLIS [Suspect]
     Active Substance: CARFILZOMIB
     Dosage: 38 MG, UNK
     Route: 065
     Dates: start: 2017
  4. KYPROLIS [Suspect]
     Active Substance: CARFILZOMIB
     Indication: PLASMA CELL MYELOMA
     Dosage: 20 MG, UNK
     Route: 065
     Dates: start: 201709, end: 2017

REACTIONS (5)
  - Rash generalised [Recovered/Resolved]
  - Blood creatinine increased [Unknown]
  - Urticaria [Unknown]
  - Neuropathy peripheral [Unknown]
  - Muscle disorder [Unknown]

NARRATIVE: CASE EVENT DATE: 2017
